FAERS Safety Report 9305456 (Version 1)
Quarter: 2013Q2

REPORT INFORMATION
  Report Type: Spontaneous
  Country: US (occurrence: US)
  Receive Date: 20130523
  Receipt Date: 20130523
  Transmission Date: 20140414
  Serious: No
  Sender: FDA-Public Use
  Company Number: US-BAYER-2013-063712

PATIENT
  Age: 84 Year
  Sex: Male
  Weight: 95 kg

DRUGS (9)
  1. ALEVE CAPLET [Suspect]
     Indication: ANALGESIC THERAPY
     Dosage: 1 DF, BID
     Route: 048
  2. METFORMIN [Concomitant]
  3. POTASSIUM [Concomitant]
  4. RAMIPRIL [Concomitant]
  5. OXYBUTYNIN [Concomitant]
  6. LEVOTHYROXINE [Concomitant]
  7. GLUCOSAMINE [Concomitant]
  8. CALCIUM [Concomitant]
  9. ONE A DAY MENS [VIT C,B5,D3,B12,B9,B3,B6,RETINOL,B2,B1 HCL,VIT E] [Concomitant]

REACTIONS (1)
  - Incorrect drug administration duration [None]
